FAERS Safety Report 20576914 (Version 1)
Quarter: 2022Q1

REPORT INFORMATION
  Report Type: Spontaneous
  Country: US (occurrence: US)
  Receive Date: 20220310
  Receipt Date: 20220310
  Transmission Date: 20220423
  Serious: Yes (Other)
  Sender: FDA-Public Use
  Company Number: US-JNJFOC-20220315797

PATIENT
  Sex: Female

DRUGS (2)
  1. XARELTO [Suspect]
     Active Substance: RIVAROXABAN
     Indication: Product used for unknown indication
     Dosage: 15 MG BID FOR 3 WEEKS
     Route: 048
  2. XARELTO [Suspect]
     Active Substance: RIVAROXABAN
     Route: 048

REACTIONS (4)
  - Deep vein thrombosis [Unknown]
  - Pulmonary embolism [Unknown]
  - Ankle operation [Recovered/Resolved]
  - Peripheral swelling [Unknown]
